FAERS Safety Report 20103394 (Version 1)
Quarter: 2021Q4

REPORT INFORMATION
  Report Type: Spontaneous
  Country: IT (occurrence: IT)
  Receive Date: 20211123
  Receipt Date: 20211123
  Transmission Date: 20220304
  Serious: Yes (Hospitalization, Other)
  Sender: FDA-Public Use
  Company Number: IT-ABBVIE-21K-083-4167477-00

PATIENT
  Age: 46 Year
  Sex: Female

DRUGS (5)
  1. VALPROIC ACID [Suspect]
     Active Substance: VALPROIC ACID
     Indication: Bipolar I disorder
     Route: 065
     Dates: start: 2018, end: 2018
  2. PAROXETINE [Concomitant]
     Active Substance: PAROXETINE
     Indication: Product used for unknown indication
     Dates: start: 2018
  3. PROMAZINE [Concomitant]
     Active Substance: PROMAZINE
     Indication: Product used for unknown indication
     Dates: start: 2018, end: 2018
  4. ALPRAZOLAM [Concomitant]
     Active Substance: ALPRAZOLAM
     Indication: Product used for unknown indication
     Dates: start: 2018
  5. HALOPERIDOL [Concomitant]
     Active Substance: HALOPERIDOL
     Indication: Product used for unknown indication
     Dates: start: 2018, end: 2018

REACTIONS (7)
  - Electrocardiogram QT prolonged [Recovered/Resolved]
  - Hyperuricaemia [Recovered/Resolved]
  - Drug level increased [Recovered/Resolved]
  - Toxicity to various agents [Recovered/Resolved]
  - Hypertonia [Recovered/Resolved]
  - Cerebral atrophy [Recovered/Resolved]
  - Encephalopathy [Recovered/Resolved]
